FAERS Safety Report 7630504-X (Version None)
Quarter: 2011Q3

REPORT INFORMATION
  Report Type: 
  Country: None (occurrence: None)
  Receive Date: 20110722
  Receipt Date: 20110718
  Transmission Date: 20111222
  Serious: No
  Sender: FDA-Public Use
  Company Number: AU-PFIZER INC-2011116675

PATIENT
  Age: 50 Year
  Sex: Male
  Weight: 97 kg

DRUGS (2)
  1. LIPITOR [Concomitant]
     Indication: HYPERLIPIDAEMIA
     Dosage: 40 MG, 1X/DAY
     Dates: start: 20050101
  2. VARENICLINE TARTRATE [Suspect]
     Indication: SMOKING CESSATION THERAPY
     Dosage: 1 MG, 2X/DAY
     Route: 048
     Dates: start: 20110330, end: 20110630

REACTIONS (2)
  - DYSGEUSIA [None]
  - PAROSMIA [None]
